FAERS Safety Report 25733995 (Version 1)
Quarter: 2025Q3

REPORT INFORMATION
  Report Type: Report from Study
  Country: US (occurrence: US)
  Receive Date: 20250828
  Receipt Date: 20250828
  Transmission Date: 20251020
  Serious: Yes (Death, Hospitalization)
  Sender: ABBVIE
  Company Number: US-ABBVIE-6430246

PATIENT
  Age: 71 Year
  Sex: Male

DRUGS (2)
  1. VENCLEXTA [Suspect]
     Active Substance: VENETOCLAX
     Indication: Acute myeloid leukaemia
     Dosage: STOP DATE:2025,?4 VENCLEXTA OF 100 MG ONCE DAILY
     Route: 048
     Dates: start: 20250310
  2. POSACONAZOLE [Concomitant]
     Active Substance: POSACONAZOLE
     Indication: Acute myeloid leukaemia
     Dosage: STOP DATE: 2025
     Route: 048
     Dates: start: 202502

REACTIONS (2)
  - Death [Fatal]
  - Intensive care [Not Recovered/Not Resolved]

NARRATIVE: CASE EVENT DATE: 20250101
